FAERS Safety Report 18326199 (Version 1)
Quarter: 2020Q3

REPORT INFORMATION
  Report Type: Report from Study
  Country: IT (occurrence: IT)
  Receive Date: 20200929
  Receipt Date: 20200929
  Transmission Date: 20201103
  Serious: Yes (Hospitalization)
  Sender: FDA-Public Use
  Company Number: IT-MYLANLABS-2020M1082592

PATIENT
  Age: 39 Year
  Sex: Male

DRUGS (3)
  1. VATRAN [Suspect]
     Active Substance: DIAZEPAM
     Indication: PSYCHOMOTOR HYPERACTIVITY
     Dosage: 40 MILLIGRAM, QD
     Route: 048
     Dates: start: 20200803
  2. FELISON [Suspect]
     Active Substance: FLURAZEPAM MONOHYDROCHLORIDE
     Indication: PSYCHOMOTOR HYPERACTIVITY
     Dosage: 30 MILLIGRAM, QD
     Route: 048
     Dates: start: 20200803
  3. OLANZAPINE. [Suspect]
     Active Substance: OLANZAPINE
     Indication: PERSONALITY DISORDER
     Dosage: 10 MILLIGRAM, CYCLE
     Route: 048
     Dates: start: 20200803, end: 20200807

REACTIONS (3)
  - Drug ineffective [Recovered/Resolved]
  - Psychomotor hyperactivity [Recovered/Resolved]
  - Hallucination [Recovered/Resolved]

NARRATIVE: CASE EVENT DATE: 20200807
